FAERS Safety Report 9828744 (Version 1)
Quarter: 2014Q1

REPORT INFORMATION
  Report Type: Spontaneous
  Country: US (occurrence: US)
  Receive Date: 20140117
  Receipt Date: 20140117
  Transmission Date: 20141002
  Serious: Yes (Death)
  Sender: FDA-Public Use
  Company Number: US-BAXTER-2014BAX002253

PATIENT
  Age: 91 Year
  Sex: Female

DRUGS (15)
  1. VANCOMYCIN INJECTION, USP [Suspect]
     Indication: BILIARY FISTULA
  2. VANCOMYCIN INJECTION, USP [Suspect]
     Indication: SEPSIS
  3. VANCOMYCIN INJECTION, USP [Suspect]
     Indication: CHOLECYSTITIS ACUTE
  4. PIPERACILLIN/TAZOBACTIM [Suspect]
     Indication: BILIARY FISTULA
  5. PIPERACILLIN/TAZOBACTIM [Suspect]
     Indication: SEPSIS
  6. PIPERACILLIN/TAZOBACTIM [Suspect]
     Indication: CHOLECYSTITIS ACUTE
  7. CEFTAZIDIME [Suspect]
     Indication: BILIARY FISTULA
  8. CEFTAZIDIME [Suspect]
     Indication: SEPSIS
  9. CEFTAZIDIME [Suspect]
     Indication: CHOLECYSTITIS ACUTE
  10. AMPICILLIN/SULBACTAM [Suspect]
     Indication: BILIARY FISTULA
  11. AMPICILLIN/SULBACTAM [Suspect]
     Indication: SEPSIS
  12. AMPICILLIN/SULBACTAM [Suspect]
     Indication: CHOLECYSTITIS ACUTE
  13. AUGMENTIN [Suspect]
     Indication: BILIARY FISTULA
  14. AUGMENTIN [Suspect]
     Indication: SEPSIS
  15. AUGMENTIN [Suspect]
     Indication: CHOLECYSTITIS ACUTE

REACTIONS (1)
  - Linear IgA disease [Fatal]
